FAERS Safety Report 24093027 (Version 1)
Quarter: 2024Q3

REPORT INFORMATION
  Report Type: Spontaneous
  Country: BE (occurrence: BE)
  Receive Date: 20240715
  Receipt Date: 20240715
  Transmission Date: 20241017
  Serious: Yes (Life-Threatening, Hospitalization, Other)
  Sender: MYLAN
  Company Number: BE-APOTEX-2018AP015987

PATIENT
  Age: 76 Year
  Sex: Female

DRUGS (4)
  1. DULOXETINE [Interacting]
     Active Substance: DULOXETINE
     Indication: Fibromyalgia
     Dosage: CHRONIC INTAKE
     Route: 065
  2. PREGABALIN [Interacting]
     Active Substance: PREGABALIN
     Indication: Analgesic therapy
     Dosage: 300 MILLIGRAM, QD (150 MG, BID)
     Route: 065
  3. PREGABALIN [Interacting]
     Active Substance: PREGABALIN
     Indication: Fibromyalgia
     Dosage: 150 MILLIGRAM, BID
     Route: 065
  4. AMIODARONE [Interacting]
     Active Substance: AMIODARONE
     Indication: Atrial fibrillation
     Dosage: 200 MILLIGRAM, QD (PER DAY)
     Route: 065

REACTIONS (10)
  - Condition aggravated [Recovered/Resolved]
  - Ventricular fibrillation [Recovered/Resolved]
  - Mitral valve incompetence [Recovered/Resolved]
  - Cardiac arrest [Recovered/Resolved]
  - Drug interaction [Unknown]
  - Electrocardiogram QT prolonged [Recovered/Resolved]
  - Hypokalaemia [Recovered/Resolved]
  - Toxicity to various agents [Recovered/Resolved]
  - Drug abuse [Unknown]
  - Overdose [Unknown]
